FAERS Safety Report 5535945-2 (Version None)
Quarter: 2007Q4

REPORT INFORMATION
  Report Type: 
  Country: None (occurrence: None)
  Receive Date: 20071206
  Receipt Date: 20070827
  Transmission Date: 20080405
  Serious: Yes (Other)
  Sender: FDA-Public Use
  Company Number: US-AMGEN-KDL240496

PATIENT
  Sex: Female

DRUGS (6)
  1. ENBREL [Suspect]
     Indication: PSORIASIS
     Route: 058
     Dates: start: 20070501
  2. MECLIZINE [Concomitant]
  3. LEVOXYL [Concomitant]
  4. PROPRANOLOL [Concomitant]
  5. LISINOPRIL [Concomitant]
  6. LIPITOR [Concomitant]

REACTIONS (1)
  - CEREBROVASCULAR ACCIDENT [None]
